FAERS Safety Report 18496553 (Version 1)
Quarter: 2020Q4

REPORT INFORMATION
  Report Type: Spontaneous
  Country: US (occurrence: US)
  Receive Date: 20201112
  Receipt Date: 20201112
  Transmission Date: 20210114
  Serious: Yes (Life-Threatening, Other)
  Sender: FDA-Public Use
  Company Number: None

PATIENT
  Age: 62 Year
  Sex: Female
  Weight: 66.15 kg

DRUGS (17)
  1. LANTUS [Concomitant]
     Active Substance: INSULIN GLARGINE
  2. HUMALOG [Concomitant]
     Active Substance: INSULIN LISPRO
  3. WHEATGRASS [Concomitant]
  4. LIONS MANE [Concomitant]
  5. METFORMIN [Suspect]
     Active Substance: METFORMIN HYDROCHLORIDE
     Indication: GLUCOSE TOLERANCE IMPAIRED
     Dosage: ?          QUANTITY:1 TABLET(S);?
     Route: 048
  6. CHAGAS MUSHROOM [Concomitant]
  7. CRANBERRY POWDER [Concomitant]
  8. METFORMIN [Suspect]
     Active Substance: METFORMIN HYDROCHLORIDE
     Indication: TYPE 2 DIABETES MELLITUS
     Dosage: ?          QUANTITY:1 TABLET(S);?
     Route: 048
  9. LOSARTAN. [Concomitant]
     Active Substance: LOSARTAN
  10. OMEPRAZOLE. [Concomitant]
     Active Substance: OMEPRAZOLE
  11. GARLIC. [Concomitant]
     Active Substance: GARLIC
  12. GINSENG [Concomitant]
     Active Substance: ASIAN GINSENG
  13. TURMERIC [Concomitant]
     Active Substance: HERBALS\TURMERIC
  14. RISHI MUSHROOM [Concomitant]
  15. YARROW ROOT [Concomitant]
  16. POMEGRANATE POWDER [Concomitant]
  17. MELOXICAM. [Concomitant]
     Active Substance: MELOXICAM

REACTIONS (4)
  - Loss of personal independence in daily activities [None]
  - Malaise [None]
  - White blood cell count increased [None]
  - Chronic myelomonocytic leukaemia [None]

NARRATIVE: CASE EVENT DATE: 20200520
